FAERS Safety Report 18061938 (Version 2)
Quarter: 2020Q3

REPORT INFORMATION
  Report Type: Spontaneous
  Country: US (occurrence: US)
  Receive Date: 20200723
  Receipt Date: 20200923
  Transmission Date: 20201103
  Serious: No
  Sender: FDA-Public Use
  Company Number: US-PFIZER INC-2020280987

PATIENT
  Age: 31 Year
  Sex: Male
  Weight: 131.4 kg

DRUGS (1)
  1. DILANTIN [Suspect]
     Active Substance: PHENYTOIN
     Indication: SEIZURE
     Dosage: 400 MG, 2X/DAY
     Route: 048

REACTIONS (2)
  - Anticonvulsant drug level above therapeutic [Unknown]
  - Prescribed overdose [Unknown]
